FAERS Safety Report 5235703-2 (Version None)
Quarter: 2007Q1

REPORT INFORMATION
  Report Type: 
  Country: None (occurrence: None)
  Receive Date: 20061208
  Receipt Date: 20060712
  Transmission Date: 20070707
  Serious: Yes (Other)
  Sender: FDA-Public Use
  Company Number: 2006UW14353

PATIENT
  Age: 62 Year
  Sex: Male
  Weight: 68.038 kg

DRUGS (6)
  1. CRESTOR [Suspect]
     Indication: BLOOD CHOLESTEROL INCREASED
     Dosage: 5 MG PO
     Route: 048
     Dates: start: 20060701
  2. NORVASC /DK/ [Concomitant]
  3. RANITIDINE [Concomitant]
  4. LORAZEPAM [Concomitant]
  5. DOXACOSIN [Concomitant]
  6. OMEPRAZOLE [Concomitant]

REACTIONS (5)
  - ANXIETY [None]
  - INSOMNIA [None]
  - MALAISE [None]
  - MYALGIA [None]
  - RESTLESSNESS [None]
